FAERS Safety Report 13660905 (Version 1)
Quarter: 2017Q2

REPORT INFORMATION
  Report Type: Spontaneous
  Country: US (occurrence: US)
  Receive Date: 20170616
  Receipt Date: 20170616
  Transmission Date: 20170830
  Serious: No
  Sender: FDA-Public Use
  Company Number: US-TEVA-777634ACC

PATIENT
  Sex: Female

DRUGS (17)
  1. RESPA-ARM [Concomitant]
     Dates: start: 20081007
  2. COPAXONE [Concomitant]
     Active Substance: GLATIRAMER ACETATE
     Dates: start: 20090320
  3. ZYRTEC [Concomitant]
     Active Substance: CETIRIZINE HYDROCHLORIDE
     Dates: start: 20130418
  4. CEPHALEXIN. [Concomitant]
     Active Substance: CEPHALEXIN
     Dates: start: 20090210
  5. AZITHROMYCIN ANHYDROUS. [Concomitant]
     Active Substance: AZITHROMYCIN ANHYDROUS
     Dates: start: 20081007
  6. LEXAPRO [Concomitant]
     Active Substance: ESCITALOPRAM OXALATE
     Dates: start: 20100902
  7. IBUPROFEN. [Concomitant]
     Active Substance: IBUPROFEN
     Dates: start: 20090506
  8. AMOXICILLIN. [Concomitant]
     Active Substance: AMOXICILLIN
     Dates: start: 20090416
  9. FLUCONAZOLE. [Concomitant]
     Active Substance: FLUCONAZOLE
     Dates: start: 20090811
  10. VITAMIN D [Concomitant]
     Active Substance: CHOLECALCIFEROL
  11. LISINOPRIL. [Concomitant]
     Active Substance: LISINOPRIL
     Dates: start: 20100120
  12. SERTRALINE [Concomitant]
     Active Substance: SERTRALINE HYDROCHLORIDE
     Dates: start: 20080818
  13. VITAMIN B12 [Concomitant]
     Active Substance: CYANOCOBALAMIN
     Dates: start: 20130418
  14. COPAXONE [Suspect]
     Active Substance: GLATIRAMER ACETATE
     Indication: MULTIPLE SCLEROSIS
     Route: 058
     Dates: start: 2002
  15. LEXAPRO [Concomitant]
     Active Substance: ESCITALOPRAM OXALATE
     Dates: start: 20130418
  16. LEXAPRO [Concomitant]
     Active Substance: ESCITALOPRAM OXALATE
     Dates: start: 20091214
  17. CALCIUM D [Concomitant]
     Active Substance: CALCIUM\VITAMIN D
     Dates: start: 20080818

REACTIONS (2)
  - Flushing [Unknown]
  - Discomfort [Unknown]
